FAERS Safety Report 25651661 (Version 1)
Quarter: 2025Q3

REPORT INFORMATION
  Report Type: Spontaneous
  Country: CN (occurrence: CN)
  Receive Date: 20250806
  Receipt Date: 20250806
  Transmission Date: 20251021
  Serious: Yes (Hospitalization, Other)
  Sender: PFIZER
  Company Number: CN-PFIZER INC-PV202500092459

PATIENT
  Age: 31 Year
  Sex: Male

DRUGS (1)
  1. XYNTHA [Suspect]
     Active Substance: MOROCTOCOG ALFA
     Indication: Factor VIII deficiency
     Dates: start: 2014

REACTIONS (12)
  - Haemophilic arthropathy [Unknown]
  - Haematuria [Unknown]
  - Arthralgia [Unknown]
  - Ecchymosis [Unknown]
  - Fall [Unknown]
  - Skin haemorrhage [Recovering/Resolving]
  - Skin wound [Recovering/Resolving]
  - Joint swelling [Unknown]
  - Joint range of motion decreased [Unknown]
  - Bursitis [Unknown]
  - Joint space narrowing [Unknown]
  - Bone hypertrophy [Unknown]

NARRATIVE: CASE EVENT DATE: 20170101
